FAERS Safety Report 9995279 (Version 1)
Quarter: 2014Q1

REPORT INFORMATION
  Report Type: Spontaneous
  Country: US (occurrence: None)
  Receive Date: 20140214
  Receipt Date: 20140214
  Transmission Date: 20141002
  Serious: Yes (Other)
  Sender: FDA-Public Use
  Company Number: US-013812

PATIENT
  Age: 79 Year
  Sex: Male
  Weight: 84.37 kg

DRUGS (5)
  1. PREPOPIK [Suspect]
     Indication: BOWEL PREPARATION
     Dosage: 1ST PACKET AT 3 PM, 2ND PACKET AT 10 PM ORAL
     Dates: start: 20131121, end: 20131121
  2. GLIMEPIRIDE [Concomitant]
  3. TAMSULOSIN HCL [Concomitant]
  4. COUMADIN [Concomitant]
  5. METOPROLOL [Concomitant]

REACTIONS (1)
  - Drug ineffective [None]
